FAERS Safety Report 8322615-0 (Version None)
Quarter: 2012Q2

REPORT INFORMATION
  Report Type: 
  Country: None (occurrence: None)
  Receive Date: 20120430
  Receipt Date: 20120425
  Transmission Date: 20120825
  Serious: Yes (Life-Threatening, Other)
  Sender: FDA-Public Use
  Company Number: FR-PFIZER INC-2012101833

PATIENT
  Age: 66 Year
  Sex: Female

DRUGS (5)
  1. DOPRAM [Suspect]
     Dosage: 1 DF, SINGLE
     Route: 042
     Dates: start: 20120219, end: 20120219
  2. SUFENTANIL [Suspect]
     Indication: GENERAL ANAESTHESIA
     Dosage: 1 DF, 1X/DAY
     Route: 042
     Dates: start: 20120219, end: 20120219
  3. SOLU-MEDROL [Suspect]
     Dosage: 1 DF, 1X/DAY
     Route: 042
     Dates: start: 20120219, end: 20120219
  4. ETOMIDATE [Suspect]
     Indication: GENERAL ANAESTHESIA
     Dosage: 1 DF, SINGLE
     Route: 042
     Dates: start: 20120219, end: 20120219
  5. AMOXICILLIN TRIHYDRATE [Suspect]
     Indication: ANTIBIOTIC PROPHYLAXIS
     Dosage: 1 DF, SINGLE
     Route: 042
     Dates: start: 20120219, end: 20120219

REACTIONS (4)
  - HAEMORRHAGE [None]
  - SHOCK [None]
  - BRADYCARDIA [None]
  - RASH [None]
